FAERS Safety Report 4962876-9 (Version None)
Quarter: 2006Q2

REPORT INFORMATION
  Report Type: 
  Country: None (occurrence: None)
  Receive Date: 20060403
  Receipt Date: 20060403
  Transmission Date: 20061013
  Serious: Yes (Other)
  Sender: FDA-Public Use
  Company Number: None

PATIENT
  Age: 57 Year
  Sex: Male
  Weight: 68.4932 kg

DRUGS (1)
  1. AVANDIA [Suspect]
     Indication: DIABETES MELLITUS
     Dosage: 1/2 TABLET   TWICE DAILY  PO   (DURATION: 7 DAYS, THEN 2 DAYS)
     Route: 048

REACTIONS (3)
  - BLOOD GLUCOSE INCREASED [None]
  - BREAST DISORDER [None]
  - BREAST PAIN [None]
